FAERS Safety Report 8621771 (Version 8)
Quarter: 2013Q2

REPORT INFORMATION
  Report Type: Report from Study
  Country: CA (occurrence: CA)
  Receive Date: 20120619
  Receipt Date: 20130619
  Transmission Date: 20140414
  Serious: Yes (Other)
  Sender: FDA-Public Use
  Company Number: PHHY2012CA051808

PATIENT
  Age: 34 Year
  Sex: Female

DRUGS (6)
  1. GILENYA [Suspect]
     Indication: RELAPSING-REMITTING MULTIPLE SCLEROSIS
     Dosage: 0.5 MG, QD
     Route: 048
     Dates: start: 20120611
  2. EPIVAL [Concomitant]
     Dosage: 750 MG, UNK
  3. DIVALPROEX SODIUM [Concomitant]
     Indication: BIPOLAR DISORDER
  4. CLONAZEPAM [Concomitant]
     Indication: MUSCLE SPASTICITY
     Dosage: 0.5 MG, UNK
  5. ZOPLICONE [Concomitant]
     Dosage: 7.5 MG, PRN
  6. VITAMIN D [Concomitant]

REACTIONS (30)
  - Blood pressure decreased [Recovered/Resolved]
  - Multiple sclerosis relapse [Recovering/Resolving]
  - Central nervous system lesion [Unknown]
  - Demyelination [Unknown]
  - Limb discomfort [Not Recovered/Not Resolved]
  - Fatigue [Recovered/Resolved]
  - Muscular weakness [Not Recovered/Not Resolved]
  - Hypoaesthesia [Not Recovered/Not Resolved]
  - Optic neuritis [Unknown]
  - Balance disorder [Unknown]
  - Peroneal nerve palsy [Unknown]
  - Gait disturbance [Unknown]
  - Musculoskeletal disorder [Unknown]
  - Micturition urgency [Unknown]
  - Sensory loss [Unknown]
  - Ataxia [Unknown]
  - Walking disability [Unknown]
  - Paraesthesia [Unknown]
  - Clumsiness [Unknown]
  - Movement disorder [Unknown]
  - Cerebellar syndrome [Unknown]
  - Sensation of heaviness [Unknown]
  - Visual impairment [Unknown]
  - Burning sensation [Unknown]
  - Anxiety [Unknown]
  - Chest discomfort [Unknown]
  - Dizziness [Recovered/Resolved]
  - Pruritus [Unknown]
  - Depression [Unknown]
  - Crying [Unknown]
